FAERS Safety Report 24006687 (Version 2)
Quarter: 2024Q3

REPORT INFORMATION
  Report Type: Report from Study
  Country: US (occurrence: US)
  Receive Date: 20240624
  Receipt Date: 20240709
  Transmission Date: 20241017
  Serious: Yes (Hospitalization, Other)
  Sender: PFIZER
  Company Number: US-SEATTLE GENETICS-2024SGN05531

PATIENT
  Age: 42 Year
  Sex: Female

DRUGS (2)
  1. TUKYSA [Suspect]
     Active Substance: TUCATINIB
     Indication: Breast cancer female
     Dosage: TWO TABLETS (300MG) TWICE DAILY
     Dates: start: 20240315
  2. TUKYSA [Suspect]
     Active Substance: TUCATINIB
     Dosage: TOOK 300MG ONCE DAILY FOR 10 DAYS AND IS NOW TAKING 11 DAYS OFF
     Dates: start: 202406

REACTIONS (4)
  - Pulmonary embolism [Unknown]
  - Pneumonia [Unknown]
  - Gastritis [Unknown]
  - Off label use [Unknown]

NARRATIVE: CASE EVENT DATE: 20240401
